FAERS Safety Report 7545030-6 (Version None)
Quarter: 2011Q2

REPORT INFORMATION
  Report Type: 
  Country: None (occurrence: None)
  Receive Date: 20110614
  Receipt Date: 20110510
  Transmission Date: 20111010
  Serious: Yes (Hospitalization, Other)
  Sender: FDA-Public Use
  Company Number: US-BAYER-201025560NA

PATIENT
  Age: 25 Year
  Sex: Female

DRUGS (7)
  1. YASMIN [Suspect]
     Indication: PREMENSTRUAL SYNDROME
     Dosage: UNK
     Route: 048
     Dates: start: 20070201
  2. YAZ [Suspect]
     Indication: PREMENSTRUAL SYNDROME
     Dosage: UNK
     Route: 048
     Dates: start: 20070201
  3. ZOFRAN [Concomitant]
     Dosage: UNK
     Dates: start: 20080818
  4. AMPHETAMINE AND DEXTROAMPHETAMINE SALTS [Concomitant]
  5. PHENERGAN HCL [Concomitant]
     Dosage: UNK
  6. DILAUDID [Concomitant]
     Dosage: UNK
     Dates: start: 20080818
  7. ASCORBIC ACID [Concomitant]

REACTIONS (16)
  - GALLBLADDER INJURY [None]
  - GASTRITIS [None]
  - NAUSEA [None]
  - ABDOMINAL PAIN [None]
  - SYNCOPE [None]
  - GASTROINTESTINAL PERFORATION [None]
  - CONSTIPATION [None]
  - CHOLECYSTITIS CHRONIC [None]
  - DYSMENORRHOEA [None]
  - HAEMATEMESIS [None]
  - POSTOPERATIVE ILEUS [None]
  - DIZZINESS [None]
  - GASTROINTESTINAL PAIN [None]
  - HAEMATOCHEZIA [None]
  - DIARRHOEA [None]
  - CHOLELITHIASIS [None]
